FAERS Safety Report 7700682-2 (Version None)
Quarter: 2011Q3

REPORT INFORMATION
  Report Type: 
  Country: None (occurrence: None)
  Receive Date: 20110822
  Receipt Date: 20110818
  Transmission Date: 20111222
  Serious: Yes (Death, Hospitalization, Other)
  Sender: FDA-Public Use
  Company Number: VE-PFIZER INC-2011179620

PATIENT
  Age: 61 Year
  Sex: Female

DRUGS (2)
  1. DIAMICRON [Concomitant]
  2. LIPITOR [Suspect]
     Indication: HYPERCHOLESTEROLAEMIA
     Dosage: 80 MG, 1X/DAY
     Route: 048
     Dates: start: 20110101, end: 20110501

REACTIONS (3)
  - RESPIRATORY ARREST [None]
  - INFARCTION [None]
  - HYPERTENSION [None]
